FAERS Safety Report 9604346 (Version 2)
Quarter: 2013Q4

REPORT INFORMATION
  Report Type: Report from Study
  Country: CA (occurrence: CA)
  Receive Date: 20131008
  Receipt Date: 20131121
  Transmission Date: 20140711
  Serious: Yes (Other)
  Sender: FDA-Public Use
  Company Number: CA-JNJFOC-20131000636

PATIENT
  Age: 47 Year
  Sex: Female
  Weight: 83.46 kg

DRUGS (2)
  1. REMICADE [Suspect]
     Indication: CROHN^S DISEASE
     Route: 042
     Dates: start: 20090722
  2. DILAUDID [Suspect]
     Indication: PAIN
     Route: 065

REACTIONS (6)
  - Intestinal stenosis [Unknown]
  - Small intestinal obstruction [Unknown]
  - Small intestinal obstruction [Unknown]
  - Short-bowel syndrome [Unknown]
  - Small intestine operation [Unknown]
  - Hypersensitivity [Unknown]
